FAERS Safety Report 7008917-9 (Version None)
Quarter: 2010Q3

REPORT INFORMATION
  Report Type: 
  Country: None (occurrence: None)
  Receive Date: 20100923
  Receipt Date: 20100115
  Transmission Date: 20110219
  Serious: Yes (Hospitalization, Other)
  Sender: FDA-Public Use
  Company Number: US-ASTRAZENECA-2009SE08398

PATIENT
  Age: 52 Year
  Sex: Male
  Weight: 88.5 kg

DRUGS (4)
  1. SEROQUEL [Suspect]
     Indication: SLEEP DISORDER
     Dosage: 200 MG. 2 IN NIGHT
     Route: 048
     Dates: start: 20040101
  2. SEROQUEL [Suspect]
     Route: 048
     Dates: start: 20090209, end: 20100210
  3. RISPERDAL [Concomitant]
  4. TRAZODONE HCL [Concomitant]
     Indication: SLEEP DISORDER
     Route: 048
     Dates: start: 20090209, end: 20100210

REACTIONS (5)
  - BLOOD CHOLESTEROL INCREASED [None]
  - DIABETIC COMA [None]
  - DIABETIC KETOACIDOSIS [None]
  - HYPERLIPIDAEMIA [None]
  - TYPE 1 DIABETES MELLITUS [None]
